FAERS Safety Report 8309368-7 (Version None)
Quarter: 2012Q2

REPORT INFORMATION
  Report Type: 
  Country: None (occurrence: None)
  Receive Date: 20120420
  Receipt Date: 20120410
  Transmission Date: 20120825
  Serious: Yes (Hospitalization)
  Sender: FDA-Public Use
  Company Number: 2012SP019372

PATIENT
  Age: 44 Year
  Sex: Male

DRUGS (2)
  1. RIBAVIRIN [Suspect]
     Indication: HEPATITIS C
     Dosage: 1200 MG;QD, 1600 MG;QD
  2. PEGINTERFERON ALFA-2A [Suspect]
     Indication: HEPATITIS C
     Dosage: 180 MCG;QW;UNK

REACTIONS (4)
  - PULMONARY TUBERCULOSIS [None]
  - IRRITABILITY [None]
  - MUSCULOSKELETAL PAIN [None]
  - DISEASE RECURRENCE [None]
